FAERS Safety Report 24076182 (Version 1)
Quarter: 2024Q3

REPORT INFORMATION
  Report Type: Spontaneous
  Country: IT (occurrence: IT)
  Receive Date: 20240710
  Receipt Date: 20240710
  Transmission Date: 20241016
  Serious: Yes (Hospitalization, Other)
  Sender: MERCK
  Company Number: IT-009507513-2407ITA002256

PATIENT
  Age: 47 Year
  Sex: Female

DRUGS (1)
  1. PEMBROLIZUMAB [Suspect]
     Active Substance: PEMBROLIZUMAB
     Indication: Vaginal cancer recurrent
     Dosage: 200 MG FLAT DOSE EVERY 3 WEEKS
     Dates: start: 202201, end: 202211

REACTIONS (3)
  - Acute respiratory failure [Recovering/Resolving]
  - Interstitial lung disease [Recovering/Resolving]
  - Off label use [Unknown]

NARRATIVE: CASE EVENT DATE: 20220101
